FAERS Safety Report 7327769-0 (Version None)
Quarter: 2011Q1

REPORT INFORMATION
  Report Type: 
  Country: None (occurrence: None)
  Receive Date: 20110224
  Receipt Date: 20110224
  Transmission Date: 20110831
  Serious: No
  Sender: FDA-Public Use
  Company Number: None

PATIENT
  Age: 19 Year
  Sex: Female

DRUGS (2)
  1. DOXYCYCLINE [Suspect]
     Dates: start: 20081201, end: 20090228
  2. MINOCYCLINE HCL [Suspect]
     Dates: start: 20090101, end: 20090513

REACTIONS (1)
  - AUTOIMMUNE HEPATITIS [None]
